FAERS Safety Report 7831663-6 (Version None)
Quarter: 2011Q4

REPORT INFORMATION
  Report Type: 
  Country: None (occurrence: None)
  Receive Date: 20111021
  Receipt Date: 20111018
  Transmission Date: 20120403
  Serious: Yes (Death, Other)
  Sender: FDA-Public Use
  Company Number: US-AMGEN-USASP2011018789

PATIENT
  Sex: Female

DRUGS (2)
  1. CHEMOTHERAPEUTICS NOS [Concomitant]
  2. NPLATE [Suspect]
     Indication: IDIOPATHIC THROMBOCYTOPENIC PURPURA
     Dosage: 1 MUG/KG, UNK
     Dates: start: 20100420, end: 20100420

REACTIONS (2)
  - DISEASE PROGRESSION [None]
  - LUNG NEOPLASM MALIGNANT [None]
